FAERS Safety Report 6400271-6 (Version None)
Quarter: 2009Q4

REPORT INFORMATION
  Report Type: 
  Country: None (occurrence: None)
  Receive Date: 20091014
  Receipt Date: 20091007
  Transmission Date: 20100525
  Serious: Yes (Death, Life-Threatening, Hospitalization, Disabling)
  Sender: FDA-Public Use
  Company Number: US-MERCK-0910USA00833

PATIENT
  Age: 70 Year
  Sex: Male

DRUGS (1)
  1. COSOPT [Suspect]
     Indication: GLAUCOMA
     Route: 047
     Dates: start: 20070101, end: 20091006

REACTIONS (8)
  - ABDOMINAL PAIN [None]
  - CARDIAC DISORDER [None]
  - DEATH [None]
  - DECREASED APPETITE [None]
  - DEPRESSION [None]
  - HYPOTENSION [None]
  - VOMITING [None]
  - WEIGHT DECREASED [None]
